FAERS Safety Report 25875936 (Version 2)
Quarter: 2025Q4

REPORT INFORMATION
  Report Type: Spontaneous
  Country: EU (occurrence: EU)
  Receive Date: 20251003
  Receipt Date: 20251013
  Transmission Date: 20260118
  Serious: Yes (Other)
  Sender: AUROBINDO
  Company Number: EU-STADA-01451894

PATIENT
  Age: 64 Year
  Sex: Male

DRUGS (8)
  1. RIVAROXABAN [Interacting]
     Active Substance: RIVAROXABAN
     Indication: Deep vein thrombosis
     Dosage: 20 MILLIGRAM, ONCE A DAY
     Route: 065
  2. ATORVASTATIN\EZETIMIBE [Interacting]
     Active Substance: ATORVASTATIN\EZETIMIBE
     Indication: Dyslipidaemia
     Dosage: UNK
     Route: 065
  3. CLARITHROMYCIN [Interacting]
     Active Substance: CLARITHROMYCIN
     Indication: Bronchitis
     Dosage: 1000 MILLIGRAM, TWO TIMES A DAY
     Route: 048
  4. CLARITHROMYCIN [Interacting]
     Active Substance: CLARITHROMYCIN
     Dosage: 500 MILLIGRAM, ONCE A DAY
     Route: 048
  5. DIETARY SUPPLEMENT\HERBALS\MILK THISTLE [Interacting]
     Active Substance: MILK THISTLE
     Indication: Product used for unknown indication
     Dosage: 450 MILLIGRAM, ONCE A DAY
     Route: 065
  6. DIETARY SUPPLEMENT\HERBALS\MILK THISTLE [Interacting]
     Active Substance: MILK THISTLE
     Dosage: 150 MILLIGRAM, ONCE A DAY
     Route: 065
  7. INDAPAMIDE\TELMISARTAN [Concomitant]
     Active Substance: INDAPAMIDE\TELMISARTAN
     Indication: Hypertension
     Dosage: 80/2.5 MG
     Route: 065
  8. TAMSULOSIN [Concomitant]
     Active Substance: TAMSULOSIN
     Indication: Benign prostatic hyperplasia
     Dosage: UNK
     Route: 065

REACTIONS (4)
  - Haematuria [Unknown]
  - Drug level increased [Unknown]
  - Anticoagulation drug level increased [Unknown]
  - Drug interaction [Unknown]
